FAERS Safety Report 8830501 (Version 1)
Quarter: 2012Q4

REPORT INFORMATION
  Report Type: 
  Country: DE (occurrence: DE)
  Receive Date: 20121009
  Receipt Date: 20121009
  Transmission Date: 20130627
  Serious: Yes (Hospitalization)
  Sender: FDA-Public Use
  Company Number: DE-ELI_LILLY_AND_COMPANY-DE201209007284

PATIENT
  Age: 69 Year
  Sex: Female

DRUGS (5)
  1. CYMBALTA [Suspect]
     Dosage: 60 mg, UNK
  2. CYMBALTA [Suspect]
     Dosage: 240 mg, single
  3. BUSCOPAN [Concomitant]
     Dosage: 80 mg, single
  4. METOCLOPRAMID [Concomitant]
     Dosage: 250 mg, single
  5. BISOPROLOL [Concomitant]
     Dosage: 15 mg, single

REACTIONS (2)
  - Drug abuse [Unknown]
  - Overdose [Unknown]
